FAERS Safety Report 8582868-0 (Version None)
Quarter: 2012Q3

REPORT INFORMATION
  Report Type: 
  Country: None (occurrence: None)
  Receive Date: 20120809
  Receipt Date: 20120806
  Transmission Date: 20120928
  Serious: Yes (Hospitalization)
  Sender: FDA-Public Use
  Company Number: US-PFIZER INC-2012191343

PATIENT
  Age: 63 Year
  Sex: Female
  Weight: 116 kg

DRUGS (4)
  1. DILANTIN [Suspect]
     Dosage: 50 MG, 1X/DAY(AT NIGHT)
     Route: 048
  2. TRILEPTAL [Concomitant]
     Dosage: 450 MG (300MG ONE AND A HALF TABLET), 2X/DAY
  3. DILANTIN [Suspect]
     Indication: CONVULSION
     Dosage: 200MG IN MORNING AND 100MG AT NIGHT
     Route: 048
     Dates: end: 20120701
  4. PAXIL [Concomitant]
     Dosage: 20 MG, 1X/DAY

REACTIONS (3)
  - DRUG INEFFECTIVE [None]
  - HEAD INJURY [None]
  - FALL [None]
